FAERS Safety Report 6010355-2 (Version None)
Quarter: 2008Q4

REPORT INFORMATION
  Report Type: 
  Country: None (occurrence: None)
  Receive Date: 20081218
  Receipt Date: 20081027
  Transmission Date: 20090506
  Serious: No
  Sender: FDA-Public Use
  Company Number: A0754291A

PATIENT
  Sex: Male

DRUGS (1)
  1. FLONASE [Suspect]
     Indication: DRUG USE FOR UNKNOWN INDICATION
     Route: 045
     Dates: start: 20080101

REACTIONS (5)
  - EPISTAXIS [None]
  - FUNGAL INFECTION [None]
  - HEADACHE [None]
  - SINUS HEADACHE [None]
  - SINUSITIS [None]
